FAERS Safety Report 6762952-4 (Version None)
Quarter: 2010Q2

REPORT INFORMATION
  Report Type: 
  Country: None (occurrence: None)
  Receive Date: 20100609
  Receipt Date: 20100601
  Transmission Date: 20101027
  Serious: Yes (Other)
  Sender: FDA-Public Use
  Company Number: US-PFIZER INC-2010050083

PATIENT
  Sex: Female
  Weight: 68 kg

DRUGS (10)
  1. CHANTIX [Suspect]
     Indication: SMOKING CESSATION THERAPY
     Dosage: 0.5 MG, 1X/DAY
     Route: 048
     Dates: start: 20100101, end: 20100101
  2. CHANTIX [Suspect]
     Dosage: 1 MG, UNK
     Route: 048
     Dates: start: 20100101
  3. MECLIZINE [Suspect]
     Indication: VERTIGO
     Dosage: UNK
  4. GEODON [Concomitant]
     Indication: MENTAL DISORDER
     Dosage: 80MG AM, 160MG PM
  5. TOPAMAX [Concomitant]
     Dosage: 200 MG, 2X/DAY
  6. VISTARIL [Concomitant]
     Indication: PANIC DISORDER
     Dosage: 50 MG, UNK
  7. LORTAB [Concomitant]
     Indication: SPINAL COLUMN STENOSIS
     Dosage: 7.5 MG, UNK
  8. LORTAB [Concomitant]
     Indication: INTERVERTEBRAL DISC PROTRUSION
  9. FLEXERIL [Concomitant]
     Dosage: 10 MG, UNK
  10. ALBUTEROL [Concomitant]
     Indication: ASTHMA
     Dosage: UNK

REACTIONS (8)
  - ANXIETY [None]
  - ASTHENIA [None]
  - DECREASED APPETITE [None]
  - DEPRESSION [None]
  - DRUG INEFFECTIVE [None]
  - HALLUCINATION, AUDITORY [None]
  - INSOMNIA [None]
  - NAUSEA [None]
